FAERS Safety Report 24947896 (Version 1)
Quarter: 2025Q1

REPORT INFORMATION
  Report Type: Spontaneous
  Country: NL (occurrence: NL)
  Receive Date: 20250210
  Receipt Date: 20250210
  Transmission Date: 20250408
  Serious: Yes (Other)
  Sender: AUROBINDO
  Company Number: NL-LRB-01031861

PATIENT
  Age: 45 Year
  Sex: Female
  Weight: 64 kg

DRUGS (4)
  1. NAPROXEN SODIUM [Suspect]
     Active Substance: NAPROXEN SODIUM
     Indication: Procedural pain
     Dosage: 250 MILLIGRAM, TWO TIMES A DAY [2X PER DAG 1 STUK]
     Route: 048
     Dates: start: 20250111, end: 20250113
  2. PANTOPRAZOLE SODIUM [Suspect]
     Active Substance: PANTOPRAZOLE SODIUM
     Indication: Prophylaxis
     Dosage: 20 MILLIGRAM, ONCE A DAY [1X PER DAG 1 STUK, BIJ NAPROXEN INNEMEN]
     Route: 048
     Dates: start: 20250111
  3. ACETAMINOPHEN [Suspect]
     Active Substance: ACETAMINOPHEN
     Indication: Procedural pain
     Dosage: 1000 MILLIGRAM, FOUR TIMES/DAY [4X PER DAG 2 STUKS]
     Route: 048
     Dates: start: 20250110
  4. TRAMADOL [Suspect]
     Active Substance: TRAMADOL
     Indication: Product used for unknown indication
     Dosage: 50 MILLIGRAM, 3 TIMES A DAY [3 X PER DAG 1 STUK]
     Route: 048
     Dates: start: 20250111, end: 20250113

REACTIONS (1)
  - Anaphylactic reaction [Recovered/Resolved]
